FAERS Safety Report 6487191-6 (Version None)
Quarter: 2009Q4

REPORT INFORMATION
  Report Type: 
  Country: None (occurrence: None)
  Receive Date: 20091210
  Receipt Date: 20091207
  Transmission Date: 20100525
  Serious: Yes (Death, Life-Threatening, Hospitalization)
  Sender: FDA-Public Use
  Company Number: US-ELI_LILLY_AND_COMPANY-US200911001631

PATIENT
  Sex: Male
  Weight: 88.435 kg

DRUGS (20)
  1. PEMETREXED [Suspect]
     Indication: NON-SMALL CELL LUNG CANCER
     Dosage: 1075 MG/M2, OTHER
     Route: 042
     Dates: start: 20090721, end: 20090101
  2. PEMETREXED [Suspect]
     Dates: start: 20090929, end: 20091020
  3. CISPLATIN [Suspect]
     Indication: NON-SMALL CELL LUNG CANCER
     Dosage: 161 MG/M2, OTHER
     Route: 042
     Dates: start: 20090721, end: 20091020
  4. RADIATION [Suspect]
     Indication: NON-SMALL CELL LUNG CANCER
     Dosage: 200 D/F, UNK
     Dates: start: 20090721, end: 20090911
  5. FOLIC ACID [Concomitant]
     Indication: VITAMIN SUPPLEMENTATION
     Dates: start: 20090706, end: 20091104
  6. VITAMIN B-12 [Concomitant]
     Indication: VITAMIN SUPPLEMENTATION
     Dates: start: 20090706, end: 20090907
  7. PREVACID [Concomitant]
     Dosage: 30 MG, DAILY (1/D)
     Dates: start: 20090818
  8. CARAFATE [Concomitant]
     Dosage: 1 G, 4/D
     Dates: start: 20090818
  9. DEXAMETHASONE TAB [Concomitant]
     Dosage: 12 MG, UNK
     Route: 042
     Dates: start: 20090721
  10. PALONOSETRON [Concomitant]
     Dosage: 0.25 MG, UNK
     Route: 042
     Dates: start: 20090721
  11. PROCHLORPERAZINE [Concomitant]
     Dosage: 10 MG, AS NEEDED
     Route: 048
     Dates: start: 20090721
  12. ZOFRAN [Concomitant]
     Dosage: 8 MG, AS NEEDED
     Route: 048
     Dates: start: 20090728
  13. ALLOPURINOL [Concomitant]
     Indication: GOUT
     Route: 048
     Dates: start: 19990101
  14. GLYBURIDE [Concomitant]
     Indication: DIABETES MELLITUS
     Route: 048
     Dates: start: 19990101
  15. MIRTAZAPINE [Concomitant]
     Indication: DEPRESSION
     Route: 048
     Dates: start: 20090601
  16. NIACIN [Concomitant]
     Indication: BLOOD CHOLESTEROL
     Route: 048
     Dates: start: 19990101
  17. POTASSIUM [Concomitant]
     Indication: ELECTROLYTE SUBSTITUTION THERAPY
     Route: 048
     Dates: start: 19990101
  18. SLOW-FE [Concomitant]
     Indication: SUPPLEMENTATION THERAPY
     Route: 048
     Dates: start: 20090901
  19. ASCORBIC ACID [Concomitant]
     Indication: SUPPLEMENTATION THERAPY
     Route: 048
     Dates: start: 20060101
  20. VIVARIN [Concomitant]
     Route: 048
     Dates: start: 20030101

REACTIONS (1)
  - MYOCARDIAL INFARCTION [None]
